FAERS Safety Report 22059692 (Version 1)
Quarter: 2023Q1

REPORT INFORMATION
  Report Type: Spontaneous
  Country: CN (occurrence: None)
  Receive Date: 20230302
  Receipt Date: 20230302
  Transmission Date: 20230418
  Serious: Yes (Other)
  Sender: FDA-Public Use
  Company Number: None

PATIENT
  Age: 52 Year
  Sex: Female

DRUGS (4)
  1. HYDROXYCHLOROQUINE SULFATE [Suspect]
     Active Substance: HYDROXYCHLOROQUINE SULFATE
     Indication: Cutaneous vasculitis
     Dosage: 200 MG TWICE A DAY
  2. MYCOPHENOLATE MOFETIL [Suspect]
     Active Substance: MYCOPHENOLATE MOFETIL
     Indication: Cutaneous vasculitis
  3. METHOTREXATE [Suspect]
     Active Substance: METHOTREXATE
  4. HERBALS [Suspect]
     Active Substance: HERBALS

REACTIONS (4)
  - Drug effect less than expected [None]
  - Drug ineffective for unapproved indication [None]
  - Non-alcoholic fatty liver [None]
  - Red blood cell sedimentation rate increased [None]
